FAERS Safety Report 7229481-5 (Version None)
Quarter: 2011Q1

REPORT INFORMATION
  Report Type: 
  Country: None (occurrence: None)
  Receive Date: 20110117
  Receipt Date: 20100115
  Transmission Date: 20110831
  Serious: No
  Sender: FDA-Public Use
  Company Number: US-TYCO HEALTHCARE/MALLINCKRODT-T201000348

PATIENT
  Sex: Male
  Weight: 83.447 kg

DRUGS (8)
  1. PREDNISONE [Concomitant]
     Indication: PREMEDICATION
     Dosage: 4 DOSES
     Route: 048
     Dates: start: 20100106, end: 20100107
  2. LOPRESSOR [Concomitant]
     Indication: HEART RATE INCREASED
     Dosage: 100 MG, UNK
     Route: 048
     Dates: start: 20100107, end: 20100107
  3. LISINOPRIL [Concomitant]
  4. OPTIRAY 350 [Suspect]
     Indication: ANGIOGRAM
     Dosage: 75 ML, SINGLE
     Route: 042
     Dates: start: 20100107, end: 20100107
  5. ASPIRIN [Concomitant]
  6. CRESTOR [Concomitant]
  7. PRILOSEC [Concomitant]
  8. BENADRYL [Concomitant]
     Indication: PREMEDICATION
     Dosage: 25 MG, SINGLE
     Route: 048
     Dates: start: 20100107, end: 20100107

REACTIONS (2)
  - URTICARIA [None]
  - RASH [None]
